FAERS Safety Report 9913959 (Version 1)
Quarter: 2014Q1

REPORT INFORMATION
  Report Type: Spontaneous
  Country: US (occurrence: None)
  Receive Date: 20140219
  Receipt Date: 20140219
  Transmission Date: 20141002
  Serious: Yes (Other)
  Sender: FDA-Public Use
  Company Number: None

PATIENT
  Age: 44 Year
  Sex: Female
  Weight: 54.43 kg

DRUGS (1)
  1. NAFTIN [Suspect]
     Indication: FUNGAL INFECTION
     Dosage: APPLICATION TO SOLES OF FEET  ONCE DAILY  APPLIED TO A SURFACE, USUALLY THE SKIN
     Route: 061

REACTIONS (3)
  - Erythema [None]
  - Burning sensation [None]
  - Dry skin [None]
